FAERS Safety Report 16054713 (Version 3)
Quarter: 2019Q2

REPORT INFORMATION
  Report Type: Spontaneous
  Country: JP (occurrence: JP)
  Receive Date: 20190309
  Receipt Date: 20190611
  Transmission Date: 20190711
  Serious: Yes (Death, Hospitalization, Other)
  Sender: FDA-Public Use
  Company Number: PHJP2019JP002910

PATIENT
  Age: 69 Year
  Sex: Female
  Weight: 51.9 kg

DRUGS (8)
  1. DENOTAS [Concomitant]
     Active Substance: CALCIUM CARBONATE\CHOLECALCIFEROL\MAGNESIUM CARBONATE
     Indication: HYPOCALCAEMIA
     Dosage: 1 DF, BID
     Route: 048
     Dates: end: 20190302
  2. LAC-B [Concomitant]
     Active Substance: BIFIDOBACTERIUM SPP.
     Indication: PRODUCT USED FOR UNKNOWN INDICATION
     Dosage: 1 G, BID
     Route: 048
     Dates: end: 20190302
  3. THYRADIN [Concomitant]
     Active Substance: LEVOTHYROXINE
     Indication: HYPOTHYROIDISM
     Dosage: 50 UG, BID
     Route: 048
     Dates: end: 20190302
  4. NIVOLUMAB [Suspect]
     Active Substance: NIVOLUMAB
     Indication: METASTATIC RENAL CELL CARCINOMA
     Dosage: 240 MG, UNK
     Route: 041
     Dates: start: 20180726, end: 20190129
  5. VOTRIENT [Suspect]
     Active Substance: PAZOPANIB HYDROCHLORIDE
     Indication: RENAL CELL CARCINOMA
     Dosage: 800 MG, QD
     Route: 048
     Dates: start: 20190219, end: 20190302
  6. HIBON [Concomitant]
     Active Substance: RIBOFLAVIN
     Indication: PRODUCT USED FOR UNKNOWN INDICATION
     Dosage: 20 MG, QD
     Route: 048
     Dates: end: 20190302
  7. EQUA [Concomitant]
     Active Substance: VILDAGLIPTIN
     Indication: DIABETES MELLITUS
     Dosage: 50 MG, QD
     Route: 048
     Dates: end: 20190302
  8. CALONAL [Concomitant]
     Active Substance: ACETAMINOPHEN
     Indication: PRODUCT USED FOR UNKNOWN INDICATION
     Dosage: 400 MG, BID
     Route: 048
     Dates: end: 20190302

REACTIONS (28)
  - Blood creatine phosphokinase increased [Fatal]
  - Respiratory acidosis [Fatal]
  - Malaise [Fatal]
  - Rash [Not Recovered/Not Resolved]
  - Blood uric acid increased [Fatal]
  - Renal impairment [Fatal]
  - Decreased appetite [Fatal]
  - Blood pressure decreased [Fatal]
  - Tumour lysis syndrome [Fatal]
  - Dehydration [Fatal]
  - Pyrexia [Fatal]
  - Erythema [Unknown]
  - Generalised oedema [Fatal]
  - Platelet count increased [Fatal]
  - Dyspnoea [Fatal]
  - Circulatory collapse [Fatal]
  - Disseminated intravascular coagulation [Fatal]
  - Anuria [Fatal]
  - Oxygen saturation decreased [Fatal]
  - Oliguria [Fatal]
  - Blood phosphorus increased [Fatal]
  - Shock [Fatal]
  - Platelet count decreased [Fatal]
  - C-reactive protein increased [Fatal]
  - Liver disorder [Fatal]
  - Enterocolitis [Unknown]
  - Diarrhoea [Unknown]
  - Hypertension [Not Recovered/Not Resolved]

NARRATIVE: CASE EVENT DATE: 20190301
